FAERS Safety Report 19176800 (Version 9)
Quarter: 2021Q3

REPORT INFORMATION
  Report Type: Spontaneous
  Country: JP (occurrence: JP)
  Receive Date: 20210424
  Receipt Date: 20210907
  Transmission Date: 20211014
  Serious: Yes (Hospitalization, Other)
  Sender: FDA-Public Use
  Company Number: JP-BRISTOL-MYERS SQUIBB COMPANY-BMS-2020-073190

PATIENT
  Age: 61 Year
  Sex: Male
  Weight: 68.6 kg

DRUGS (19)
  1. OPDIVO [Suspect]
     Active Substance: NIVOLUMAB
     Dosage: 240 MILLIGRAM, ONE TIME DOSE
     Route: 041
     Dates: start: 20200413, end: 20200413
  2. OPDIVO [Suspect]
     Active Substance: NIVOLUMAB
     Dosage: 240 MILLIGRAM, ONE TIME DOSE
     Route: 041
     Dates: start: 20200508, end: 20200508
  3. ZOLEDRONIC ACID [Suspect]
     Active Substance: ZOLEDRONIC ACID
     Indication: DECREASED APPETITE
     Dosage: 2ND COURSE
     Route: 065
     Dates: start: 20200413
  4. ZOLEDRONIC ACID [Suspect]
     Active Substance: ZOLEDRONIC ACID
     Dosage: 4TH COURSE
     Route: 065
     Dates: start: 20200529
  5. TERAMURO [Concomitant]
     Indication: PRODUCT USED FOR UNKNOWN INDICATION
     Dosage: 10 MILLIGRAM, QD
     Route: 048
     Dates: end: 20200412
  6. OPDIVO [Suspect]
     Active Substance: NIVOLUMAB
     Dosage: 240 MILLIGRAM, ONE TIME DOSE
     Route: 041
     Dates: start: 20200318, end: 20200318
  7. YERVOY [Suspect]
     Active Substance: IPILIMUMAB
     Dosage: 1 MILLIGRAM/KILOGRAM, ONE TIME DOSE
     Route: 041
     Dates: start: 20200413, end: 20200413
  8. OPDIVO [Suspect]
     Active Substance: NIVOLUMAB
     Dosage: 240 MILLIGRAM, ONE TIME DOSE
     Route: 041
     Dates: start: 20200529, end: 20200529
  9. YERVOY [Suspect]
     Active Substance: IPILIMUMAB
     Indication: METASTATIC RENAL CELL CARCINOMA
     Dosage: 1 MILLIGRAM/KILOGRAM, ONE TIME DOSE
     Route: 041
     Dates: start: 20200225, end: 20200225
  10. YERVOY [Suspect]
     Active Substance: IPILIMUMAB
     Dosage: 1 MILLIGRAM/KILOGRAM, ONE TIME DOSE
     Route: 041
     Dates: start: 20200318, end: 20200318
  11. ATORVASTATIN [Concomitant]
     Active Substance: ATORVASTATIN
     Indication: PRODUCT USED FOR UNKNOWN INDICATION
     Dosage: UNK
     Route: 048
  12. FEBURIC [Concomitant]
     Active Substance: FEBUXOSTAT
     Indication: PRODUCT USED FOR UNKNOWN INDICATION
     Dosage: 20 MILLIGRAM, QD
     Route: 048
     Dates: end: 20200528
  13. ZOLEDRONIC ACID [Suspect]
     Active Substance: ZOLEDRONIC ACID
     Indication: HYPERCALCAEMIA
     Dosage: 4 MILLIGRAM, Q3WK
     Route: 041
     Dates: start: 20200318, end: 20200529
  14. YERVOY [Suspect]
     Active Substance: IPILIMUMAB
     Dosage: 1 MILLIGRAM/KILOGRAM, ONE TIME DOSE
     Route: 041
     Dates: start: 20200508, end: 20200508
  15. JANUVIA [Concomitant]
     Active Substance: SITAGLIPTIN PHOSPHATE
     Indication: PRODUCT USED FOR UNKNOWN INDICATION
     Dosage: UNK
     Route: 048
  16. OPDIVO [Suspect]
     Active Substance: NIVOLUMAB
     Indication: METASTATIC RENAL CELL CARCINOMA
     Dosage: 240 MILLIGRAM, ONE TIME DOSE
     Route: 041
     Dates: start: 20200225, end: 20200225
  17. ZOLEDRONIC ACID [Suspect]
     Active Substance: ZOLEDRONIC ACID
     Dosage: 3RD COURSE
     Route: 065
     Dates: start: 20200508
  18. TAKECAB [Concomitant]
     Active Substance: VONOPRAZAN FUMARATE
     Indication: PROPHYLAXIS
     Dosage: 10 MILLIGRAM, QD
     Route: 048
  19. ATENOLOL. [Concomitant]
     Active Substance: ATENOLOL
     Indication: PRODUCT USED FOR UNKNOWN INDICATION
     Dosage: UNK
     Route: 048

REACTIONS (8)
  - Insulinoma [Unknown]
  - Tubulointerstitial nephritis [Unknown]
  - Thirst [Unknown]
  - Renal impairment [Recovering/Resolving]
  - Blood creatinine increased [Recovering/Resolving]
  - Hypoglycaemia [Unknown]
  - Rash [Unknown]
  - Decreased appetite [Unknown]

NARRATIVE: CASE EVENT DATE: 20200318
